FAERS Safety Report 13001501 (Version 1)
Quarter: 2016Q4

REPORT INFORMATION
  Report Type: Spontaneous
  Country: US (occurrence: US)
  Receive Date: 20161205
  Receipt Date: 20161205
  Transmission Date: 20170207
  Serious: No
  Sender: FDA-Public Use
  Company Number: None

PATIENT
  Age: 26 Year
  Sex: Female
  Weight: 67.05 kg

DRUGS (10)
  1. VITAMIN C SUPPLEMENT [Concomitant]
  2. CRANBERRY EXTRACT SUPPLEMENT [Concomitant]
  3. ONE A DAY WOMEN^S MULTIVITAMIN [Concomitant]
  4. GILDESS FE 1.5/30 [Suspect]
     Active Substance: ETHINYL ESTRADIOL\NORETHINDRONE ACETATE
     Indication: CONTRACEPTION
     Dosage: ?          QUANTITY:28 TABLET(S);?
     Route: 048
     Dates: start: 20161126, end: 20161204
  5. CLARITIN [Concomitant]
     Active Substance: LORATADINE
  6. NICOMIDE [Concomitant]
     Active Substance: CUPRIC OXIDE\FOLIC ACID\NIACINAMIDE\ZINC OXIDE
  7. PRAZOSIN [Concomitant]
     Active Substance: PRAZOSIN
  8. NAPROXEN. [Concomitant]
     Active Substance: NAPROXEN
  9. VALTREX [Concomitant]
     Active Substance: VALACYCLOVIR HYDROCHLORIDE
  10. ZOLOFT [Concomitant]
     Active Substance: SERTRALINE HYDROCHLORIDE

REACTIONS (4)
  - Product packaging quantity issue [None]
  - Amenorrhoea [None]
  - Metrorrhagia [None]
  - Product quality issue [None]

NARRATIVE: CASE EVENT DATE: 20161204
